FAERS Safety Report 19321280 (Version 4)
Quarter: 2021Q2

REPORT INFORMATION
  Report Type: Report from Study
  Country: JP (occurrence: JP)
  Receive Date: 20210527
  Receipt Date: 20210617
  Transmission Date: 20210717
  Serious: Yes (Death, Life-Threatening, Hospitalization)
  Sender: FDA-Public Use
  Company Number: JP-GILEAD-2021-0529767

PATIENT
  Age: 61 Year
  Sex: Female
  Weight: 60 kg

DRUGS (31)
  1. VANCOMYCIN [VANCOMYCIN HYDROCHLORIDE] [Suspect]
     Active Substance: VANCOMYCIN HYDROCHLORIDE
     Indication: DEVICE RELATED INFECTION
     Route: 042
     Dates: start: 20201117, end: 20201126
  2. FENTANYL. [Concomitant]
     Active Substance: FENTANYL
     Indication: ANALGESIC THERAPY
     Route: 042
     Dates: start: 20201110, end: 20201126
  3. NOREPINEPHRINE. [Concomitant]
     Active Substance: NOREPINEPHRINE
     Route: 042
     Dates: start: 20201123, end: 20201126
  4. ROCURONIUM BROMIDE. [Concomitant]
     Active Substance: ROCURONIUM BROMIDE
     Indication: MUSCLE RELAXANT THERAPY
     Route: 042
     Dates: start: 20201110, end: 20201111
  5. REMDESIVIR. [Suspect]
     Active Substance: REMDESIVIR
     Dosage: 100 MG, QD
     Route: 042
     Dates: start: 20201111, end: 20201119
  6. OMEPRAZOLE. [Concomitant]
     Active Substance: OMEPRAZOLE
     Indication: PROPHYLAXIS
     Route: 042
     Dates: start: 20201110, end: 20201112
  7. FENTANYL. [Concomitant]
     Active Substance: FENTANYL
     Indication: RESPIRATORY DISORDER
  8. LACTEC [Concomitant]
     Active Substance: CALCIUM CHLORIDE ANHYDROUS\POTASSIUM CHLORIDE\SODIUM CHLORIDE\SODIUM LACTATE
     Indication: FLUID REPLACEMENT
     Route: 042
     Dates: start: 20201112, end: 20201112
  9. HEPARIN CALCIUM [Concomitant]
     Active Substance: HEPARIN CALCIUM
     Route: 058
     Dates: start: 20201110, end: 20201126
  10. SOLDEM 3A [Concomitant]
     Active Substance: CARBOHYDRATES\POTASSIUM CHLORIDE\SODIUM CHLORIDE\SODIUM LACTATE
     Route: 042
     Dates: start: 20201110, end: 20201116
  11. RISPERIDONE. [Concomitant]
     Active Substance: RISPERIDONE
     Indication: SEDATION
     Route: 048
     Dates: start: 20201110, end: 20201114
  12. FUROSEMIDE. [Concomitant]
     Active Substance: FUROSEMIDE
     Indication: DIURETIC THERAPY
     Route: 042
     Dates: start: 20201114, end: 20201116
  13. DEXART [Concomitant]
     Active Substance: DEXAMETHASONE SODIUM PHOSPHATE
     Indication: COVID-19
     Dates: start: 20201107, end: 20201116
  14. VITAMEDIN [BENFOTIAMINE;CYANOCOBALAMIN;PYRIDOXINE HYDROCHLORIDE] [Concomitant]
     Indication: VITAMIN SUPPLEMENTATION
     Route: 042
     Dates: start: 20201110, end: 20201112
  15. TAZOPIPE [Concomitant]
     Active Substance: PIPERACILLIN SODIUM\TAZOBACTAM SODIUM
     Indication: PNEUMONIA BACTERIAL
     Route: 042
     Dates: start: 20201110, end: 20201116
  16. ACELIO [Concomitant]
     Active Substance: ACETAMINOPHEN
     Indication: ANTIPYRESIS
     Route: 042
     Dates: start: 20201111, end: 20201122
  17. POTASSIUM GLUCONATE [Concomitant]
     Active Substance: POTASSIUM GLUCONATE
     Indication: MINERAL SUPPLEMENTATION
     Route: 048
     Dates: start: 20201112, end: 20201114
  18. AZUNOL [GUAIAZULENE] [Concomitant]
     Active Substance: GUAIAZULENE
     Route: 003
     Dates: start: 20201114, end: 20201126
  19. PRECEDEX [Concomitant]
     Active Substance: DEXMEDETOMIDINE HYDROCHLORIDE
     Indication: SEDATIVE THERAPY
     Route: 042
     Dates: start: 20201111, end: 20201111
  20. LANSOPRAZOLE. [Concomitant]
     Active Substance: LANSOPRAZOLE
     Indication: PROPHYLAXIS
     Route: 048
     Dates: start: 20201113, end: 20201126
  21. WHITE SOFT PARAFFIN [Concomitant]
     Active Substance: PARAFFIN
     Indication: DRY SKIN PROPHYLAXIS
     Route: 003
     Dates: start: 20201112, end: 20201126
  22. GLUCOSE [Concomitant]
     Active Substance: DEXTROSE
     Route: 042
     Dates: start: 20201116, end: 20201123
  23. REMDESIVIR. [Suspect]
     Active Substance: REMDESIVIR
     Indication: COVID-19
     Dosage: 200 MG, QD
     Route: 042
     Dates: start: 20201110, end: 20201110
  24. DIPRIVAN [Concomitant]
     Active Substance: PROPOFOL
     Indication: SEDATIVE THERAPY
     Route: 042
     Dates: start: 20201110, end: 20201126
  25. NEO SYNESIN [Concomitant]
     Active Substance: PHENYLEPHRINE HYDROCHLORIDE
     Route: 042
     Dates: start: 20201111, end: 20201118
  26. HUMULIN R [Concomitant]
     Active Substance: INSULIN HUMAN
     Indication: DIABETES MELLITUS MANAGEMENT
     Route: 042
     Dates: start: 20201111, end: 20201117
  27. PRIMPERAN [Concomitant]
     Active Substance: METOCLOPRAMIDE HYDROCHLORIDE
     Route: 042
     Dates: start: 20201113, end: 20201116
  28. PANTOL [PANTHENOL] [Concomitant]
     Route: 042
     Dates: start: 20201113, end: 20201116
  29. KCL CORRECTIVE [Concomitant]
     Indication: ELECTROLYTE SUBSTITUTION THERAPY
     Route: 042
     Dates: start: 20201114, end: 20201123
  30. POTASSIUM CHLORIDE. [Concomitant]
     Active Substance: POTASSIUM CHLORIDE
     Indication: MINERAL SUPPLEMENTATION
     Route: 048
     Dates: start: 20201115, end: 20201123
  31. TRESIBA [Concomitant]
     Active Substance: INSULIN DEGLUDEC
     Indication: DIABETES MELLITUS MANAGEMENT
     Route: 058
     Dates: start: 20201115, end: 20201123

REACTIONS (5)
  - Blood creatinine increased [Not Recovered/Not Resolved]
  - Cardiovascular disorder [Not Recovered/Not Resolved]
  - Hyperkalaemia [Not Recovered/Not Resolved]
  - COVID-19 [Fatal]
  - Renal impairment [Not Recovered/Not Resolved]

NARRATIVE: CASE EVENT DATE: 20201123
